FAERS Safety Report 4850255-4 (Version None)
Quarter: 2005Q4

REPORT INFORMATION
  Report Type: 
  Country: None (occurrence: None)
  Receive Date: 20051207
  Receipt Date: 20051207
  Transmission Date: 20060501
  Serious: No
  Sender: FDA-Public Use
  Company Number: None

PATIENT
  Age: 6 Month
  Sex: Male

DRUGS (2)
  1. CARBAXEFED ORAL DROPS 1 MG/15 MG [Suspect]
     Dosage: LIQUID
  2. CARDEC SYRUP [Suspect]
     Dosage: LIQUID

REACTIONS (2)
  - DRUG DISPENSING ERROR [None]
  - MEDICATION ERROR [None]
